FAERS Safety Report 12689265 (Version 1)
Quarter: 2016Q3

REPORT INFORMATION
  Report Type: Spontaneous
  Country: US (occurrence: None)
  Receive Date: 20160825
  Receipt Date: 20160825
  Transmission Date: 20161109
  Serious: Yes (Hospitalization)
  Sender: FDA-Public Use
  Company Number: None

PATIENT
  Age: 80 Year
  Sex: Male
  Weight: 77.7 kg

DRUGS (1)
  1. LISINOPRIL. [Suspect]
     Active Substance: LISINOPRIL
     Indication: HYPERTENSION
     Route: 048
     Dates: start: 20150508, end: 20160604

REACTIONS (7)
  - Enlarged uvula [None]
  - Angioedema [None]
  - Viral pharyngitis [None]
  - Oropharyngeal pain [None]
  - Dysphagia [None]
  - Palatal disorder [None]
  - Pharyngeal disorder [None]

NARRATIVE: CASE EVENT DATE: 20160604
